FAERS Safety Report 4779644-3 (Version None)
Quarter: 2005Q3

REPORT INFORMATION
  Report Type: 
  Country: None (occurrence: None)
  Receive Date: 20050914
  Receipt Date: 20050706
  Transmission Date: 20060218
  Serious: Yes (Other)
  Sender: FDA-Public Use
  Company Number: 163-20785-05070084

PATIENT
  Sex: 0

DRUGS (3)
  1. THALOMID [Suspect]
     Indication: HEPATIC NEOPLASM MALIGNANT
     Dosage: 200MG QHS FOR WEEKS 1-2 TITRATED UPWARD BY 200MG AT 2 WEEK INTERVALS IF TOLERATED UP TO 1000MG, ORAL
     Route: 048
     Dates: start: 20020412
  2. AVITENE [Suspect]
     Indication: HEPATIC NEOPLASM MALIGNANT
     Dosage: FOLLOWING DOXORUBICIN TO AFFECTED LOBE, THEN REMAINING LOBE IN 3-5 WEEKS, INTRA-ARTERIAL
     Route: 013
  3. DOXORUBICIN HCL [Suspect]
     Indication: HEPATIC NEOPLASM MALIGNANT
     Dosage: 100MG IN AFFECTED LOBE STAT

REACTIONS (3)
  - BLOOD BILIRUBIN INCREASED [None]
  - PAIN IN EXTREMITY [None]
  - PLATELET COUNT DECREASED [None]
